FAERS Safety Report 10461770 (Version 1)
Quarter: 2014Q3

REPORT INFORMATION
  Report Type: Spontaneous
  Country: JP (occurrence: JP)
  Receive Date: 20140918
  Receipt Date: 20140918
  Transmission Date: 20150326
  Serious: Yes (Hospitalization)
  Sender: FDA-Public Use
  Company Number: JP-PFIZER INC-2014257368

PATIENT
  Age: 3 Decade
  Sex: Male

DRUGS (3)
  1. LEVOMEPROMAZINE [Suspect]
     Active Substance: LEVOMEPROMAZINE
     Dosage: 525 MG, SINGLE (25 MG 7 TABLETS AND 50 MG 7 TABLETS)
     Route: 048
  2. TRIAZOLAM. [Suspect]
     Active Substance: TRIAZOLAM
     Dosage: 1.75 MG, SINGLE (0.25 MG 7 TABLETS)
     Route: 048
  3. QUAZEPAM. [Suspect]
     Active Substance: QUAZEPAM
     Dosage: 140 MG, SINGLE (20 MG 7 TABLETS)
     Route: 048

REACTIONS (2)
  - Toxicity to various agents [Unknown]
  - Somnolence [Unknown]
